FAERS Safety Report 8116722-5 (Version None)
Quarter: 2012Q1

REPORT INFORMATION
  Report Type: 
  Country: None (occurrence: None)
  Receive Date: 20120206
  Receipt Date: 20120130
  Transmission Date: 20120608
  Serious: Yes (Hospitalization)
  Sender: FDA-Public Use
  Company Number: PHHY2011US34235

PATIENT
  Sex: Male

DRUGS (13)
  1. DILTIAZEM HCL [Concomitant]
     Dosage: UNK OT, UNK
  2. LASIX [Concomitant]
  3. LOSTATIN [Concomitant]
  4. AMBIEN [Concomitant]
     Dosage: UNK OT, UNK
  5. CITALOPRAM HYDROBROMIDE [Concomitant]
     Dosage: UNK OT, UNK
  6. WARFARIN SODIUM [Concomitant]
  7. TIZANIDINE HCL [Concomitant]
  8. LOVASTATIN [Concomitant]
     Dosage: UNK OT, UNK
  9. REQUIP [Concomitant]
     Dosage: UNK OT, UNK
  10. COUMADIN [Concomitant]
     Dosage: UNK OT, UNK
  11. CELEXA [Concomitant]
  12. GILENYA [Suspect]
     Indication: MULTIPLE SCLEROSIS
     Dosage: 0.5 MG, QD
     Route: 048
     Dates: start: 20110408, end: 20110408
  13. AMITRIPTYLINE HCL [Concomitant]

REACTIONS (8)
  - CHEST PAIN [None]
  - HEADACHE [None]
  - FACE OEDEMA [None]
  - INFLUENZA LIKE ILLNESS [None]
  - ASTHENIA [None]
  - HYPOTENSION [None]
  - FATIGUE [None]
  - VOMITING [None]
